FAERS Safety Report 5915137-5 (Version None)
Quarter: 2008Q4

REPORT INFORMATION
  Report Type: 
  Country: None (occurrence: None)
  Receive Date: 20081010
  Receipt Date: 20081002
  Transmission Date: 20090506
  Serious: Yes (Other)
  Sender: FDA-Public Use
  Company Number: CA-ASTRAZENECA-2008UW21701

PATIENT
  Sex: Female

DRUGS (1)
  1. MERREM [Suspect]
     Route: 042
     Dates: start: 20080929

REACTIONS (1)
  - HAEMOLYSIS [None]
